FAERS Safety Report 7306166-8 (Version None)
Quarter: 2011Q1

REPORT INFORMATION
  Report Type: 
  Country: None (occurrence: None)
  Receive Date: 20110209
  Receipt Date: 20110128
  Transmission Date: 20110831
  Serious: Yes (Other)
  Sender: FDA-Public Use
  Company Number: 003456

PATIENT
  Sex: Female
  Weight: 49.8 kg

DRUGS (6)
  1. CIMZIA [Suspect]
     Indication: CROHN'S DISEASE
     Dosage: (400 MG 1X/2 WEEKS  SUBCUTANEOUS), (400 MG 1X/MONTH SUBCUTANEOUS)
     Route: 058
     Dates: start: 20091007, end: 20091104
  2. CIMZIA [Suspect]
     Indication: CROHN'S DISEASE
     Dosage: (400 MG 1X/2 WEEKS  SUBCUTANEOUS), (400 MG 1X/MONTH SUBCUTANEOUS)
     Route: 058
     Dates: end: 20091204
  3. PREDNISONE [Concomitant]
  4. APO-CIPROFLOX [Concomitant]
  5. ORTHO TRI-CYCLEN [Concomitant]
  6. DIURETICS [Concomitant]

REACTIONS (8)
  - OEDEMA PERIPHERAL [None]
  - DYSPNOEA [None]
  - JOINT SWELLING [None]
  - WEIGHT INCREASED [None]
  - THROAT TIGHTNESS [None]
  - NEUROPATHY PERIPHERAL [None]
  - RASH [None]
  - CONJUNCTIVITIS [None]
